FAERS Safety Report 17437829 (Version 1)
Quarter: 2020Q1

REPORT INFORMATION
  Report Type: Spontaneous
  Country: US (occurrence: US)
  Receive Date: 20200219
  Receipt Date: 20200219
  Transmission Date: 20200409
  Serious: No
  Sender: FDA-Public Use
  Company Number: US-CELGENEUS-USA-20200204701

PATIENT
  Age: 53 Year
  Sex: Male

DRUGS (2)
  1. OTEZLA [Suspect]
     Active Substance: APREMILAST
     Indication: OFF LABEL USE
  2. OTEZLA [Suspect]
     Active Substance: APREMILAST
     Indication: ILL-DEFINED DISORDER
     Dosage: 10/20/30 MG (TITRATION PACK)
     Route: 048
     Dates: start: 20200125

REACTIONS (4)
  - Gingival pain [Recovering/Resolving]
  - Fatigue [Recovering/Resolving]
  - Rhinalgia [Recovering/Resolving]
  - Nasal congestion [Recovering/Resolving]

NARRATIVE: CASE EVENT DATE: 202001
